FAERS Safety Report 10301574 (Version 1)
Quarter: 2014Q3

REPORT INFORMATION
  Report Type: Spontaneous
  Country: US (occurrence: None)
  Receive Date: 20140710
  Receipt Date: 20140710
  Transmission Date: 20150326
  Serious: No
  Sender: FDA-Public Use
  Company Number: None

PATIENT
  Age: 43 Year
  Sex: Female
  Weight: 88.45 kg

DRUGS (1)
  1. BUTALBITAL [Suspect]
     Active Substance: BUTALBITAL
     Indication: HEADACHE
     Dosage: 50-325-LONG?QID PRN?PO
     Route: 048
     Dates: start: 201206

REACTIONS (2)
  - Pruritus [None]
  - Drug ineffective [None]

NARRATIVE: CASE EVENT DATE: 201206
